FAERS Safety Report 23518976 (Version 1)
Quarter: 2024Q1

REPORT INFORMATION
  Report Type: Spontaneous
  Country: BE (occurrence: BE)
  Receive Date: 20240213
  Receipt Date: 20240213
  Transmission Date: 20240409
  Serious: Yes (Other)
  Sender: FDA-Public Use
  Company Number: None

PATIENT
  Age: 73 Year
  Sex: Male
  Weight: 70 kg

DRUGS (1)
  1. LEQVIO [Suspect]
     Active Substance: INCLISIRAN SODIUM
     Indication: Blood cholesterol
     Dosage: 1 DOSAGE FORM, 2 TIMES A YEAR ((LAST IN 23 NOV) 1ST DOSE IN FEB, 2ND AFTER 3 MONTHS, 3RD AFTER 6 MON
     Route: 058
     Dates: start: 20230220

REACTIONS (4)
  - Erectile dysfunction [Not Recovered/Not Resolved]
  - Eczema [Recovering/Resolving]
  - Somnolence [Not Recovered/Not Resolved]
  - Tremor [Not Recovered/Not Resolved]

NARRATIVE: CASE EVENT DATE: 20230220
